FAERS Safety Report 9736806 (Version 1)
Quarter: 2013Q4

REPORT INFORMATION
  Report Type: Spontaneous
  Country: US (occurrence: US)
  Receive Date: 20131206
  Receipt Date: 20131206
  Transmission Date: 20140711
  Serious: No
  Sender: FDA-Public Use
  Company Number: US-BIOGENIDEC-2013BI097928

PATIENT
  Sex: Female

DRUGS (10)
  1. TECFIDERA [Suspect]
     Indication: PRODUCT USED FOR UNKNOWN INDICATION
     Route: 048
  2. TECFIDERA [Suspect]
     Indication: PRODUCT USED FOR UNKNOWN INDICATION
     Route: 048
  3. MUCINEX [Concomitant]
  4. PEPTO-BISMOL [Concomitant]
  5. VITAMIN D [Concomitant]
  6. PRILOSEC [Concomitant]
  7. ANTACID [Concomitant]
  8. ASPIRIN [Concomitant]
  9. FISH OIL [Concomitant]
  10. TYLENOL [Concomitant]

REACTIONS (4)
  - Pyrexia [Unknown]
  - Respiratory tract congestion [Unknown]
  - Flushing [Unknown]
  - Abdominal pain [Unknown]
